FAERS Safety Report 23325802 (Version 1)
Quarter: 2023Q4

REPORT INFORMATION
  Report Type: Report from Study
  Country: FR (occurrence: FR)
  Receive Date: 20231221
  Receipt Date: 20231221
  Transmission Date: 20240109
  Serious: Yes (Other)
  Sender: FDA-Public Use
  Company Number: FR-PFIZER INC-202300446563

PATIENT
  Age: 41 Month
  Sex: Male

DRUGS (1)
  1. PAMIDRONATE DISODIUM [Suspect]
     Active Substance: PAMIDRONATE DISODIUM
     Indication: Fracture
     Dosage: 0.5 MG/KG, 1X/DAY, 3 DAYS EVERY 3 MONTHS

REACTIONS (2)
  - Drug ineffective [Unknown]
  - Fracture [Unknown]
